FAERS Safety Report 5220983-X (Version None)
Quarter: 2007Q1

REPORT INFORMATION
  Report Type: 
  Country: None (occurrence: None)
  Receive Date: 20070123
  Receipt Date: 20070109
  Transmission Date: 20070707
  Serious: Yes (Other)
  Sender: FDA-Public Use
  Company Number: US018911

PATIENT
  Age: 62 Year
  Sex: Female

DRUGS (4)
  1. TRISENOX [Suspect]
     Indication: ACUTE PROMYELOCYTIC LEUKAEMIA
     Dosage: 8.19 MG QD INTRAVENOUS DRIP
     Route: 041
     Dates: start: 20060126, end: 20060326
  2. IDARUBICIN HDYROCHLORIDE [Concomitant]
  3. CYTARABINE [Concomitant]
  4. DANAPAROID SODIUM [Suspect]
     Dosage: 1250 IU QD INTRAVENOUS
     Route: 042
     Dates: start: 20060126, end: 20060208

REACTIONS (5)
  - ALANINE AMINOTRANSFERASE INCREASED [None]
  - CONDITION AGGRAVATED [None]
  - GAMMA-GLUTAMYLTRANSFERASE INCREASED [None]
  - HEPATIC FUNCTION ABNORMAL [None]
  - LEUKOCYTOSIS [None]
